FAERS Safety Report 21179859 (Version 1)
Quarter: 2022Q3

REPORT INFORMATION
  Report Type: Other
  Country: None (occurrence: GB)
  Receive Date: 20220805
  Receipt Date: 20220805
  Transmission Date: 20221027
  Serious: No
  Sender: FDA-Public Use
  Company Number: GB-SIGA Technologies, Inc.-2131564

PATIENT
  Age: 30 Year
  Sex: Male
  Weight: 70 kg

DRUGS (7)
  1. TPOXX [Suspect]
     Active Substance: TECOVIRIMAT
     Indication: Monkeypox
     Route: 048
     Dates: start: 20220607, end: 20220612
  2. ENOXAPARIN SODIUM [Concomitant]
     Active Substance: ENOXAPARIN SODIUM
     Route: 058
     Dates: start: 20220530
  3. ACID REDUCER (OMEPRAZOLE MAGNESIUM) [Concomitant]
     Active Substance: OMEPRAZOLE MAGNESIUM
     Route: 048
     Dates: start: 20220609
  4. OXYCODONE. [Concomitant]
     Active Substance: OXYCODONE HYDROCHLORIDE
     Route: 048
     Dates: start: 20220608
  5. IBUPROFEN [Concomitant]
     Active Substance: IBUPROFEN
     Route: 048
     Dates: start: 20220530
  6. SENNA [Concomitant]
     Active Substance: SENNA LEAF\SENNOSIDES\SENNOSIDES A AND B
     Route: 048
     Dates: start: 20220531
  7. CHLORAMPHENICOL SODIUM SUCCINATE [Concomitant]
     Active Substance: CHLORAMPHENICOL SODIUM SUCCINATE
     Route: 047
     Dates: start: 20220607, end: 20220612

REACTIONS (1)
  - Alanine aminotransferase increased [Recovering/Resolving]

NARRATIVE: CASE EVENT DATE: 20220607
